FAERS Safety Report 8680583 (Version 2)
Quarter: 2014Q3

REPORT INFORMATION
  Report Type: Spontaneous
  Country: US (occurrence: US)
  Receive Date: 20120724
  Receipt Date: 20140804
  Transmission Date: 20150326
  Serious: Yes (Hospitalization, Other)
  Sender: FDA-Public Use
  Company Number: US-009507513-1207USA006584

PATIENT
  Sex: Female

DRUGS (1)
  1. NUVARING [Suspect]
     Active Substance: ETHINYL ESTRADIOL\ETONOGESTREL
     Indication: PRODUCT USED FOR UNKNOWN INDICATION
     Dosage: UNK
     Dates: start: 20070222

REACTIONS (19)
  - Trigeminal neuralgia [Unknown]
  - Adverse event [Not Recovered/Not Resolved]
  - Peripheral vascular disorder [Unknown]
  - Hypercholesterolaemia [Unknown]
  - Neck pain [Not Recovered/Not Resolved]
  - Sinus tachycardia [Unknown]
  - Type 2 diabetes mellitus [Unknown]
  - Asthma [Unknown]
  - Surgery [Unknown]
  - Hypopituitarism [Unknown]
  - Hypothyroidism [Unknown]
  - Bipolar I disorder [Unknown]
  - Endometriosis [Unknown]
  - Diabetes insipidus [Recovered/Resolved]
  - Road traffic accident [Unknown]
  - Peripheral embolism [Unknown]
  - Colitis ulcerative [Unknown]
  - Pain [Not Recovered/Not Resolved]
  - Idiopathic neutropenia [Unknown]

NARRATIVE: CASE EVENT DATE: 20070703
